FAERS Safety Report 5334794-8 (Version None)
Quarter: 2007Q2

REPORT INFORMATION
  Report Type: 
  Country: None (occurrence: None)
  Receive Date: 20070525
  Receipt Date: 20070521
  Transmission Date: 20071010
  Serious: Yes (Other)
  Sender: FDA-Public Use
  Company Number: PHBS2007FR08379

PATIENT
  Age: 30 Year
  Sex: Female

DRUGS (2)
  1. PARLODEL [Suspect]
     Indication: PARKINSON'S DISEASE
     Dosage: 7.5 MG, TID
  2. MADOPAR [Suspect]
     Indication: PARKINSON'S DISEASE
     Dosage: 62.5 MG, TID

REACTIONS (2)
  - DRUG EXPOSURE DURING PREGNANCY [None]
  - PREMATURE LABOUR [None]
